FAERS Safety Report 10547797 (Version 2)
Quarter: 2014Q4

REPORT INFORMATION
  Report Type: Spontaneous
  Country: GB (occurrence: None)
  Receive Date: 20141024
  Receipt Date: 20141218
  Transmission Date: 20150529
  Serious: Yes (Other)
  Sender: FDA-Public Use
  Company Number: 20142161

PATIENT
  Sex: Female

DRUGS (2)
  1. HUMIRA [Suspect]
     Active Substance: ADALIMUMAB
     Indication: RENAL MASS
  2. METOJECT [Suspect]
     Active Substance: METHOTREXATE SODIUM
     Indication: RENAL MASS
     Dosage: SOLUTION FOR INJECTION IN PRE-FILLED SYRINGE

REACTIONS (1)
  - Renal mass [None]
